FAERS Safety Report 15716898 (Version 1)
Quarter: 2018Q4

REPORT INFORMATION
  Report Type: Spontaneous
  Country: US (occurrence: US)
  Receive Date: 20181213
  Receipt Date: 20181213
  Transmission Date: 20190205
  Serious: No
  Sender: FDA-Public Use
  Company Number: None

PATIENT
  Age: 38 Year
  Sex: Female
  Weight: 58.05 kg

DRUGS (1)
  1. AZELASTINE HCL NASAL SPRAY [Suspect]
     Active Substance: AZELASTINE HYDROCHLORIDE
     Indication: RHINITIS
     Dosage: ?          QUANTITY:1 SPRAY(S);OTHER ROUTE:SPRAYED INTO THE NOSE?
     Dates: start: 20181031, end: 20181210

REACTIONS (3)
  - Perioral dermatitis [None]
  - Product substitution issue [None]
  - Acne [None]

NARRATIVE: CASE EVENT DATE: 20181031
